FAERS Safety Report 16509766 (Version 1)
Quarter: 2019Q3

REPORT INFORMATION
  Report Type: Spontaneous
  Country: US (occurrence: US)
  Receive Date: 20190701
  Receipt Date: 20190701
  Transmission Date: 20191004
  Serious: Yes (Other)
  Sender: FDA-Public Use
  Company Number: None

PATIENT
  Age: 51 Year
  Sex: Female
  Weight: 49.5 kg

DRUGS (1)
  1. EPIDIOLEX [Suspect]
     Active Substance: CANNABIDIOL
     Indication: SEIZURE
     Dosage: ?          QUANTITY:5 ML;?
     Route: 048
     Dates: start: 20190207

REACTIONS (1)
  - Anticoagulation drug level increased [None]

NARRATIVE: CASE EVENT DATE: 20190308
